FAERS Safety Report 23257158 (Version 1)
Quarter: 2023Q4

REPORT INFORMATION
  Report Type: Spontaneous
  Country: US (occurrence: None)
  Receive Date: 20231204
  Receipt Date: 20231204
  Transmission Date: 20240110
  Serious: No
  Sender: FDA-Public Use
  Company Number: US-ARIS GLOBAL-RDH202311-000127

PATIENT
  Sex: Male

DRUGS (1)
  1. AEMCOLO [Suspect]
     Active Substance: RIFAMYCIN
     Indication: Mycobacterium avium complex infection
     Dosage: UNK
     Route: 048

REACTIONS (2)
  - Drug intolerance [Unknown]
  - Product use in unapproved indication [Unknown]
